FAERS Safety Report 16973598 (Version 1)
Quarter: 2019Q4

REPORT INFORMATION
  Report Type: Report from Study
  Country: US (occurrence: US)
  Receive Date: 20191030
  Receipt Date: 20191030
  Transmission Date: 20200122
  Serious: Yes (Other)
  Sender: FDA-Public Use
  Company Number: NVSC2019US016452

PATIENT
  Sex: Female

DRUGS (2)
  1. ZARXIO [Suspect]
     Active Substance: FILGRASTIM-SNDZ
     Indication: BONE MARROW FAILURE
     Dosage: 480 UG, QD
     Route: 050
  2. ZARXIO [Suspect]
     Active Substance: FILGRASTIM-SNDZ
     Indication: ACUTE MYELOID LEUKAEMIA

REACTIONS (1)
  - Hypersensitivity [Recovering/Resolving]
